FAERS Safety Report 13472601 (Version 1)
Quarter: 2017Q2

REPORT INFORMATION
  Report Type: Spontaneous
  Country: US (occurrence: US)
  Receive Date: 20170423
  Receipt Date: 20170423
  Transmission Date: 20170830
  Serious: Yes (Death)
  Sender: FDA-Public Use
  Company Number: None

PATIENT
  Age: 67 Year
  Sex: Female
  Weight: 92 kg

DRUGS (1)
  1. CARBOPLATIN. [Suspect]
     Active Substance: CARBOPLATIN
     Route: 041

REACTIONS (4)
  - Unresponsive to stimuli [None]
  - Resuscitation [None]
  - Pulseless electrical activity [None]
  - Pulse absent [None]

NARRATIVE: CASE EVENT DATE: 20170316
